FAERS Safety Report 10094885 (Version 1)
Quarter: 2014Q2

REPORT INFORMATION
  Report Type: Spontaneous
  Country: GB (occurrence: None)
  Receive Date: 20140418
  Receipt Date: 20140418
  Transmission Date: 20141212
  Serious: Yes (Other)
  Sender: FDA-Public Use
  Company Number: FK201401355

PATIENT
  Age: 37 Year
  Sex: Female
  Weight: 68 kg

DRUGS (7)
  1. GRANISETRON [Suspect]
     Indication: PROPHYLAXIS OF NAUSEA AND VOMITING
     Route: 042
     Dates: start: 20140318, end: 20140318
  2. PROPOFOL [Suspect]
     Indication: INDUCTION OF ANAESTHESIA
     Route: 042
     Dates: start: 20140318, end: 20140318
  3. PARACETAMOL [Suspect]
     Indication: ANALGESIC THERAPY
     Route: 042
     Dates: start: 20140318, end: 20140318
  4. DEXAMETHASONE [Suspect]
     Indication: PROPHYLAXIS OF NAUSEA AND VOMITING
     Route: 042
     Dates: start: 20140318, end: 20140318
  5. DICLOFENAC SODIUM [Suspect]
     Indication: ANALGESIC THERAPY
     Route: 042
     Dates: start: 20140318, end: 20140318
  6. FENTANYL [Suspect]
     Indication: INDUCTION OF ANAESTHESIA
     Route: 042
     Dates: start: 20140318, end: 20140318
  7. SYNTOCINON [Suspect]
     Indication: EVACUATION OF RETAINED PRODUCTS OF CONCEPTION
     Route: 042
     Dates: start: 20140318, end: 20140318

REACTIONS (4)
  - Lip swelling [None]
  - Periorbital oedema [None]
  - Bradycardia [None]
  - Hypotension [None]
